FAERS Safety Report 5608704-X (Version None)
Quarter: 2008Q1

REPORT INFORMATION
  Report Type: 
  Country: None (occurrence: None)
  Receive Date: 20080131
  Receipt Date: 20080118
  Transmission Date: 20080703
  Serious: Yes (Other)
  Sender: FDA-Public Use
  Company Number: US-PFIZER INC-2008007535

PATIENT
  Sex: Female
  Weight: 52.272 kg

DRUGS (1)
  1. CHANTIX [Suspect]
     Indication: SMOKING CESSATION THERAPY
     Dates: start: 20071001, end: 20080101

REACTIONS (9)
  - ABDOMINAL DISTENSION [None]
  - ABDOMINAL PAIN UPPER [None]
  - BLADDER PERFORATION [None]
  - FLATULENCE [None]
  - HYSTERECTOMY [None]
  - INFREQUENT BOWEL MOVEMENTS [None]
  - MALAISE [None]
  - POST PROCEDURAL URINE LEAK [None]
  - SUTURE REMOVAL [None]
